FAERS Safety Report 11943447 (Version 1)
Quarter: 2016Q1

REPORT INFORMATION
  Report Type: Spontaneous
  Country: US (occurrence: US)
  Receive Date: 20160125
  Receipt Date: 20160125
  Transmission Date: 20160526
  Serious: No
  Sender: FDA-Public Use
  Company Number: US-UNITED THERAPEUTICS-UNT-2015-005013

PATIENT
  Sex: Male
  Weight: 86.17 kg

DRUGS (8)
  1. ORENITRAM [Suspect]
     Active Substance: TREPROSTINIL
     Indication: PULMONARY ARTERIAL HYPERTENSION
     Dosage: 5 MG, Q8H
     Route: 048
     Dates: start: 20110207
  2. ORENITRAM [Suspect]
     Active Substance: TREPROSTINIL
     Dosage: 6 TABLETS, Q8H
     Route: 048
     Dates: start: 20150414
  3. ORENITRAM [Suspect]
     Active Substance: TREPROSTINIL
     Dosage: 15 MG, TID
     Route: 048
     Dates: start: 20150414
  4. ORENITRAM [Suspect]
     Active Substance: TREPROSTINIL
     Dosage: UNK
     Route: 048
  5. WARFARIN [Concomitant]
     Active Substance: WARFARIN
     Indication: PRODUCT USED FOR UNKNOWN INDICATION
  6. ORENITRAM [Suspect]
     Active Substance: TREPROSTINIL
     Dosage: 7 MG, Q8H
     Route: 048
     Dates: start: 20110207
  7. ORENITRAM [Suspect]
     Active Substance: TREPROSTINIL
     Dosage: UNK
  8. ADCIRCA [Concomitant]
     Active Substance: TADALAFIL
     Indication: PRODUCT USED FOR UNKNOWN INDICATION

REACTIONS (11)
  - Night sweats [Unknown]
  - Atrial fibrillation [Unknown]
  - Pyrexia [Not Recovered/Not Resolved]
  - Arthralgia [Unknown]
  - Lacrimation increased [Not Recovered/Not Resolved]
  - Pain in jaw [Unknown]
  - Chills [Unknown]
  - Headache [Unknown]
  - Palpitations [Unknown]
  - Flushing [Unknown]
  - Fatigue [Not Recovered/Not Resolved]

NARRATIVE: CASE EVENT DATE: 2015
